FAERS Safety Report 5622666-0 (Version None)
Quarter: 2008Q1

REPORT INFORMATION
  Report Type: 
  Country: None (occurrence: None)
  Receive Date: 20080212
  Receipt Date: 20080204
  Transmission Date: 20080703
  Serious: Yes (Hospitalization)
  Sender: FDA-Public Use
  Company Number: DE-BAYER-200812611GPV

PATIENT
  Sex: Male

DRUGS (2)
  1. CIPRO [Suspect]
     Indication: URINARY TRACT INFECTION
     Dosage: UNIT DOSE: 500 MG
     Route: 065
  2. CIPRO [Suspect]
     Dosage: UNIT DOSE: 500 MG
     Route: 065

REACTIONS (2)
  - DIARRHOEA [None]
  - DIARRHOEA HAEMORRHAGIC [None]
